FAERS Safety Report 18039450 (Version 1)
Quarter: 2020Q3

REPORT INFORMATION
  Report Type: Spontaneous
  Country: NL (occurrence: NL)
  Receive Date: 20200717
  Receipt Date: 20200717
  Transmission Date: 20201103
  Serious: Yes (Hospitalization)
  Sender: FDA-Public Use
  Company Number: NL-TEVA-2020-NL-1799166

PATIENT
  Sex: Male
  Weight: 4 kg

DRUGS (1)
  1. OLANZAPINE SMELTTABLET 10MG SMELTTABLET, 10 MG (MILLIGRAM) [Suspect]
     Active Substance: OLANZAPINE
     Indication: PSYCHOTIC DISORDER
     Dosage: 10 MILLIGRAM DAILY; THERAPY START DATE AND END DATE : ASKED BUT UNKNOWN
     Route: 065

REACTIONS (3)
  - Newborn persistent pulmonary hypertension [Recovered/Resolved]
  - Drug withdrawal syndrome neonatal [Recovered/Resolved]
  - Respiratory disorder neonatal [Recovered/Resolved]
